FAERS Safety Report 16107097 (Version 1)
Quarter: 2019Q1

REPORT INFORMATION
  Report Type: Spontaneous
  Country: CA (occurrence: CA)
  Receive Date: 20190322
  Receipt Date: 20190322
  Transmission Date: 20190418
  Serious: Yes (Other)
  Sender: FDA-Public Use
  Company Number: CA-SHIRE-CA201908923

PATIENT

DRUGS (1)
  1. GAMMAGARD LIQUID [Suspect]
     Active Substance: HUMAN IMMUNOGLOBULIN G
     Indication: PYODERMA GANGRENOSUM
     Dosage: 30 GRAM, 1X A MONTH
     Route: 042

REACTIONS (4)
  - Anti B antibody positive [Recovered/Resolved]
  - Nausea [Recovered/Resolved]
  - Pruritus generalised [Recovered/Resolved]
  - Anti A antibody positive [Recovered/Resolved]
